FAERS Safety Report 19962854 (Version 2)
Quarter: 2021Q4

REPORT INFORMATION
  Report Type: Report from Study
  Country: MX (occurrence: MX)
  Receive Date: 20211018
  Receipt Date: 20211102
  Transmission Date: 20220303
  Serious: Yes (Death)
  Sender: FDA-Public Use
  Company Number: MX-NOVARTISPH-NVSC2021MX236614

PATIENT
  Age: 74 Year
  Sex: Female
  Weight: 65 kg

DRUGS (2)
  1. FEMARA [Suspect]
     Active Substance: LETROZOLE
     Indication: Cervix carcinoma
     Dosage: 1 DF, QD (1 DF OF 2.5 MG)
     Route: 048
     Dates: start: 202011, end: 202107
  2. FEMARA [Suspect]
     Active Substance: LETROZOLE
     Dosage: 2.5 MG
     Route: 065

REACTIONS (2)
  - Metastases to stomach [Fatal]
  - Off label use [Unknown]

NARRATIVE: CASE EVENT DATE: 20201101
